FAERS Safety Report 18599506 (Version 2)
Quarter: 2021Q1

REPORT INFORMATION
  Report Type: Spontaneous
  Country: US (occurrence: US)
  Receive Date: 20201210
  Receipt Date: 20210201
  Transmission Date: 20210419
  Serious: Yes (Other)
  Sender: FDA-Public Use
  Company Number: US-ASTRAZENECA-2020SF49792

PATIENT
  Sex: Female

DRUGS (4)
  1. IBRANCE [Suspect]
     Active Substance: PALBOCICLIB
     Indication: BREAST CANCER
     Route: 048
     Dates: start: 20201113
  2. FULVESTRANT. [Suspect]
     Active Substance: FULVESTRANT
     Route: 030
  3. FULVESTRANT. [Suspect]
     Active Substance: FULVESTRANT
     Route: 030
     Dates: start: 20201113
  4. IBRANCE [Suspect]
     Active Substance: PALBOCICLIB
     Indication: BREAST CANCER
     Route: 048
     Dates: start: 20201009

REACTIONS (7)
  - Fatigue [Unknown]
  - Urticaria [Unknown]
  - Neutrophil count decreased [Unknown]
  - Alopecia [Unknown]
  - Back pain [Unknown]
  - White blood cell count decreased [Unknown]
  - Product dose omission issue [Unknown]
